FAERS Safety Report 11072662 (Version 2)
Quarter: 2015Q3

REPORT INFORMATION
  Report Type: Spontaneous
  Country: JP (occurrence: JP)
  Receive Date: 20150428
  Receipt Date: 20150827
  Transmission Date: 20151125
  Serious: Yes (Hospitalization)
  Sender: FDA-Public Use
  Company Number: JP-DSJP-DSJ-2015-113286

PATIENT

DRUGS (15)
  1. VOLTAREN [Concomitant]
     Active Substance: DICLOFENAC SODIUM
     Indication: ANTIPHOSPHOLIPID SYNDROME
     Dosage: 25 MG, TID
     Route: 048
     Dates: start: 20120105
  2. URSO [Concomitant]
     Active Substance: URSODIOL
     Indication: CHOLANGITIS
     Dosage: 100 MG, TID
     Route: 048
     Dates: start: 20111230
  3. PARIET [Concomitant]
     Active Substance: RABEPRAZOLE SODIUM
     Dosage: 10 MG, QD
     Route: 048
     Dates: start: 20120105
  4. PREDONINE [Concomitant]
     Active Substance: PREDNISOLONE\PREDNISOLONE ACETATE\PREDNISOLONE SODIUM SUCCINATE
     Indication: ANTIPHOSPHOLIPID SYNDROME
     Dosage: 5 MG, QD
     Route: 048
     Dates: start: 20111228
  5. VOLTAREN [Concomitant]
     Active Substance: DICLOFENAC SODIUM
     Indication: SJOGREN^S SYNDROME
  6. PREDONINE [Concomitant]
     Active Substance: PREDNISOLONE\PREDNISOLONE ACETATE\PREDNISOLONE SODIUM SUCCINATE
     Indication: SJOGREN^S SYNDROME
  7. HYALEIN [Concomitant]
     Active Substance: HYALURONATE SODIUM
     Indication: ANTIPHOSPHOLIPID SYNDROME
     Dosage: 1 TIME, SEVERAL TIMES
     Route: 047
     Dates: start: 20120110
  8. BREDININ [Concomitant]
     Active Substance: MIZORIBINE
     Indication: SYSTEMIC LUPUS ERYTHEMATOSUS
     Dosage: 50 MG, BID
     Route: 048
     Dates: start: 20120229
  9. ALESION [Concomitant]
     Active Substance: EPINASTINE HYDROCHLORIDE
     Dosage: 20 MG, QD
     Route: 048
     Dates: start: 20150123, end: 20150123
  10. LIXIANA TABLETS [Suspect]
     Active Substance: EDOXABAN TOSILATE MONOHYDRATE
     Indication: DEEP VEIN THROMBOSIS
     Dosage: 60 MG, QD
     Route: 048
     Dates: start: 20150128, end: 20150130
  11. MUCOSTA [Concomitant]
     Active Substance: REBAMIPIDE
     Dosage: 100 MG, TID
     Route: 048
     Dates: start: 20150105
  12. HYALEIN [Concomitant]
     Active Substance: HYALURONATE SODIUM
     Indication: SJOGREN^S SYNDROME
  13. MAGNESIUM OXIDE. [Concomitant]
     Active Substance: MAGNESIUM OXIDE
     Indication: CONSTIPATION
     Dosage: 0.68 MG, TID
     Route: 048
     Dates: start: 20120104
  14. LYRICA [Concomitant]
     Active Substance: PREGABALIN
     Indication: ARTHRITIS
     Dosage: 25 MG, BID
     Route: 048
     Dates: start: 20120229
  15. MOHRUS [Concomitant]
     Active Substance: KETOPROFEN
     Dosage: 20 MG, QD
     Route: 050

REACTIONS (1)
  - Cholangitis [Recovered/Resolved]

NARRATIVE: CASE EVENT DATE: 20150130
